FAERS Safety Report 15274524 (Version 3)
Quarter: 2020Q1

REPORT INFORMATION
  Report Type: Spontaneous
  Country: US (occurrence: US)
  Receive Date: 20180814
  Receipt Date: 20200323
  Transmission Date: 20200409
  Serious: No
  Sender: FDA-Public Use
  Company Number: US-BIOGEN-2015BI140844

PATIENT
  Sex: Female

DRUGS (4)
  1. TYSABRI [Suspect]
     Active Substance: NATALIZUMAB
     Dosage: INFUSE OVER 1 HR
     Route: 050
     Dates: end: 20150511
  2. TYSABRI [Suspect]
     Active Substance: NATALIZUMAB
     Dosage: INFUSE OVER 1 HR
     Route: 050
     Dates: start: 20090403, end: 20091119
  3. TYSABRI [Suspect]
     Active Substance: NATALIZUMAB
     Indication: MULTIPLE SCLEROSIS
     Dosage: INFUSE OVER 1 HR
     Route: 050
     Dates: start: 20090403, end: 20091020
  4. TYSABRI [Suspect]
     Active Substance: NATALIZUMAB
     Dosage: INFUSE OVER 1 HR
     Route: 050
     Dates: start: 20101116

REACTIONS (1)
  - Amnesia [Unknown]
